FAERS Safety Report 10142416 (Version 1)
Quarter: 2014Q2

REPORT INFORMATION
  Report Type: Report from Study
  Country: PL (occurrence: PL)
  Receive Date: 20140430
  Receipt Date: 20140430
  Transmission Date: 20141212
  Serious: Yes (Congenital Anomaly)
  Sender: FDA-Public Use
  Company Number: PL-ROCHE-1385945

PATIENT
  Age: 5 Month
  Sex: Female

DRUGS (3)
  1. PEG-INTERFERON ALFA 2A [Suspect]
     Indication: CHRONIC HEPATITIS C
     Route: 050
     Dates: start: 20120904
  2. RIBAVIRIN [Suspect]
     Indication: CHRONIC HEPATITIS C
     Route: 050
     Dates: start: 20120904
  3. TELAPREVIR [Suspect]
     Indication: CHRONIC HEPATITIS C
     Route: 050
     Dates: start: 20120904, end: 20121128

REACTIONS (2)
  - Atrial septal defect [Unknown]
  - Exposure via father [Unknown]
